FAERS Safety Report 14406388 (Version 1)
Quarter: 2018Q1

REPORT INFORMATION
  Report Type: Spontaneous
  Country: US (occurrence: US)
  Receive Date: 20180118
  Receipt Date: 20180118
  Transmission Date: 20180509
  Serious: Yes (Hospitalization, Other)
  Sender: FDA-Public Use
  Company Number: US-GLAXOSMITHKLINE-US2018007755

PATIENT
  Age: 79 Year
  Sex: Female

DRUGS (7)
  1. ADVAIR DISKUS [Suspect]
     Active Substance: FLUTICASONE PROPIONATE\SALMETEROL XINAFOATE
     Indication: ASTHMA
     Dosage: 1 PUFF(S), BID
     Route: 055
  2. COMBIVENT RESPIMAT [Concomitant]
     Active Substance: ALBUTEROL SULFATE\IPRATROPIUM BROMIDE
  3. ZYRTEC [Concomitant]
     Active Substance: CETIRIZINE HYDROCHLORIDE
  4. BENADRYL AH [Concomitant]
  5. LYRICA [Concomitant]
     Active Substance: PREGABALIN
  6. ALBUTEROL. [Concomitant]
     Active Substance: ALBUTEROL
  7. ASPIRIN. [Concomitant]
     Active Substance: ASPIRIN

REACTIONS (6)
  - Patella fracture [Unknown]
  - Hip surgery [Unknown]
  - Cough [Unknown]
  - Productive cough [Unknown]
  - Fall [Unknown]
  - Knee operation [Unknown]

NARRATIVE: CASE EVENT DATE: 201701
